FAERS Safety Report 8275194-0 (Version None)
Quarter: 2012Q2

REPORT INFORMATION
  Report Type: 
  Country: None (occurrence: None)
  Receive Date: 20120411
  Receipt Date: 20120404
  Transmission Date: 20120825
  Serious: Yes (Other)
  Sender: FDA-Public Use
  Company Number: US-PFIZER INC-2012086210

PATIENT
  Sex: Female

DRUGS (22)
  1. REBIF [Concomitant]
     Dosage: 44 MCQ, 3X/WEEK
  2. PRISTIQ [Suspect]
     Dosage: 100 MG, 1X/DAY
     Route: 048
  3. ASCORBIC ACID [Concomitant]
     Dosage: UNK
  4. LAMOTRIGINE [Concomitant]
     Dosage: 200 MG, 1X/DAY
     Route: 048
  5. TOPAMAX [Concomitant]
     Indication: PAIN
     Dosage: UNK
  6. ZINC [Concomitant]
     Dosage: UNK
  7. RESTORIL [Concomitant]
     Indication: INSOMNIA
     Dosage: UNK
  8. LISINOPRIL [Concomitant]
     Dosage: 20 MG, 1X/DAY
     Route: 048
  9. PREDNISONE [Concomitant]
     Indication: MULTIPLE SCLEROSIS
     Dosage: UNK
  10. NEURONTIN [Suspect]
     Indication: PAIN
     Dosage: 100 MG, 3X/DAY
     Route: 048
  11. FISH OIL [Concomitant]
     Dosage: UNK
  12. TRAZODONE [Concomitant]
     Dosage: 50 MG, QHS
     Route: 048
  13. VITAMIN D [Concomitant]
     Dosage: UNK
  14. VALIUM [Concomitant]
     Dosage: UNK
  15. LYRICA [Suspect]
     Dosage: 75 MG, 3X/DAY
     Route: 048
  16. AMBIEN [Concomitant]
     Indication: INSOMNIA
     Dosage: UNK
  17. COMPAZINE [Concomitant]
     Dosage: UNK
  18. VICODIN [Concomitant]
     Dosage: UNK
  19. PROPRANOLOL [Concomitant]
     Dosage: UNK
  20. VITAMIN B COMPLEX CAP [Concomitant]
     Dosage: UNK
  21. MAGNESIUM [Concomitant]
     Dosage: UNK
  22. OXYCODONE [Concomitant]
     Dosage: UNK

REACTIONS (22)
  - OSTEOARTHRITIS [None]
  - ROAD TRAFFIC ACCIDENT [None]
  - DEPRESSION [None]
  - HYPOAESTHESIA [None]
  - ARTHRALGIA [None]
  - CONSTIPATION [None]
  - HYPERAESTHESIA [None]
  - DEMYELINATION [None]
  - BLADDER DISORDER [None]
  - PAIN [None]
  - PAIN IN EXTREMITY [None]
  - MULTIPLE SCLEROSIS [None]
  - VITAMIN D DECREASED [None]
  - SPINAL CORD DISORDER [None]
  - BALANCE DISORDER [None]
  - BLOOD PRESSURE INCREASED [None]
  - MEMORY IMPAIRMENT [None]
  - FATIGUE [None]
  - DYSPNOEA [None]
  - CHEST DISCOMFORT [None]
  - BLADDER DILATATION [None]
  - HEARING IMPAIRED [None]
